FAERS Safety Report 4510621-3 (Version None)
Quarter: 2004Q4

REPORT INFORMATION
  Report Type: 
  Country: None (occurrence: None)
  Receive Date: 20041119
  Receipt Date: 20041004
  Transmission Date: 20050328
  Serious: Yes (Hospitalization)
  Sender: FDA-Public Use
  Company Number: 805#1#2004-00025

PATIENT
  Age: 1 Year
  Sex: Female

DRUGS (9)
  1. PROSTADIN-I.V. (ALPROSTADIL (PAOD)) [Suspect]
     Indication: HEART DISEASE CONGENITAL
     Dosage: 700 NANOGRAM/MIN INTRAVENOUS DRIP
     Route: 041
     Dates: start: 20040809, end: 20040816
  2. SULTAMICILLIN-TOSILATE (SULTAMICILLIN) [Suspect]
     Indication: HEART DISEASE CONGENITAL
     Dosage: 70 NANOGRAM/MIN INTRAVENOUS DRIP
     Route: 041
     Dates: start: 20040721, end: 20040809
  3. ALPROSTADIL [Suspect]
     Indication: HEART DISEASE CONGENITAL
     Dosage: 700 NANOGRAM/MIN INTRAVENOUS DRIP
     Route: 041
     Dates: start: 20040816, end: 20040830
  4. SULTAMICILLIN-TOSILATE (SULTAMICILLIN) [Concomitant]
  5. PANIPENEM/BETAMIPRON (BETAMIPRON, PANIPENEM) [Concomitant]
  6. ERYTHROMYCIN [Concomitant]
  7. CLINDAMYCIN-PHOSPHATE (CLINDAMYCIN) [Concomitant]
  8. AMIKACIN SULFATE [Concomitant]
  9. CEFACLOR [Concomitant]

REACTIONS (3)
  - CONDITION AGGRAVATED [None]
  - INFLAMMATION [None]
  - RASH GENERALISED [None]
